FAERS Safety Report 18065896 (Version 1)
Quarter: 2020Q3

REPORT INFORMATION
  Report Type: Spontaneous
  Country: US (occurrence: US)
  Receive Date: 20200724
  Receipt Date: 20200724
  Transmission Date: 20201103
  Serious: No
  Sender: FDA-Public Use
  Company Number: US-009507513-2007USA008522

PATIENT
  Age: 53 Year
  Sex: Female

DRUGS (2)
  1. LENVATINIB MESYLATE [Suspect]
     Active Substance: LENVATINIB MESYLATE
     Indication: SMALL CELL CARCINOMA OF THE CERVIX
     Dosage: UNK
     Dates: start: 20200621
  2. KEYTRUDA [Suspect]
     Active Substance: PEMBROLIZUMAB
     Indication: SMALL CELL CARCINOMA OF THE CERVIX
     Dosage: UNK
     Dates: start: 20200621

REACTIONS (1)
  - Mediastinum neoplasm [Unknown]
